FAERS Safety Report 19301576 (Version 4)
Quarter: 2024Q1

REPORT INFORMATION
  Report Type: Spontaneous
  Country: CA (occurrence: CA)
  Receive Date: 20210525
  Receipt Date: 20240227
  Transmission Date: 20240410
  Serious: Yes (Other)
  Sender: FDA-Public Use
  Company Number: CA-LANTHEUS-LMI-2020-00603

PATIENT
  Age: 40 Year
  Sex: Female
  Weight: 63 kg

DRUGS (1)
  1. CARDIOLITE [Suspect]
     Active Substance: TECHNETIUM TC-99M SESTAMIBI
     Indication: Magnetic resonance imaging heart
     Dosage: UNK
     Route: 042
     Dates: start: 20200928, end: 20200928

REACTIONS (11)
  - Abortion spontaneous [Recovered/Resolved]
  - Skin burning sensation [Not Recovered/Not Resolved]
  - Paraesthesia [Not Recovered/Not Resolved]
  - Intermenstrual bleeding [Unknown]
  - Menstruation irregular [Unknown]
  - Fear of injection [Unknown]
  - Thrombosis [Unknown]
  - Heavy menstrual bleeding [Unknown]
  - Breast mass [Not Recovered/Not Resolved]
  - Infertility [Not Recovered/Not Resolved]
  - COVID-19 [Unknown]

NARRATIVE: CASE EVENT DATE: 20200928
